FAERS Safety Report 4983228-1 (Version None)
Quarter: 2006Q2

REPORT INFORMATION
  Report Type: 
  Country: None (occurrence: None)
  Receive Date: 20060426
  Receipt Date: 20060418
  Transmission Date: 20061013
  Serious: Yes (Other)
  Sender: FDA-Public Use
  Company Number: PHEH2006US05070

PATIENT
  Age: 10 Year
  Sex: Female
  Weight: 109 kg

DRUGS (1)
  1. TRILEPTAL [Suspect]
     Indication: BIPOLAR DISORDER
     Dosage: 1200 MG, QD
     Route: 048
     Dates: start: 20050901

REACTIONS (4)
  - BIPOLAR DISORDER [None]
  - FIGHT IN SCHOOL [None]
  - HOMICIDAL IDEATION [None]
  - WEIGHT INCREASED [None]
